FAERS Safety Report 6450896-7 (Version None)
Quarter: 2009Q4

REPORT INFORMATION
  Report Type: 
  Country: None (occurrence: None)
  Receive Date: 20091123
  Receipt Date: 20091109
  Transmission Date: 20100525
  Serious: Yes (Hospitalization, Other)
  Sender: FDA-Public Use
  Company Number: LV-PFIZER INC-2009292056

PATIENT
  Age: 26 Year
  Sex: Male
  Weight: 86 kg

DRUGS (8)
  1. BLINDED *NO SUBJECT DRUG [Suspect]
     Indication: PULMONARY ARTERIAL HYPERTENSION
     Dosage: UNK
     Route: 048
     Dates: start: 20090619
  2. BLINDED *PLACEBO [Suspect]
     Indication: PULMONARY ARTERIAL HYPERTENSION
     Dosage: UNK
     Route: 048
     Dates: start: 20090619
  3. BLINDED SILDENAFIL CITRATE [Suspect]
     Indication: PULMONARY ARTERIAL HYPERTENSION
     Dosage: UNK
     Route: 048
     Dates: start: 20090619
  4. SPIRIX [Concomitant]
     Dosage: 25 MG, 2X/DAY
     Route: 048
     Dates: start: 20090501
  5. NORVASC [Concomitant]
     Dosage: 2.5 MG, 1X/DAY
     Route: 048
     Dates: start: 20090501
  6. OMEPRAZOLE [Concomitant]
     Dosage: 20 MG, 2X/DAY
     Route: 048
     Dates: start: 20090501
  7. TORASEMIDE [Concomitant]
     Dosage: 5 MG, 2X/DAY
     Route: 048
     Dates: start: 20090501
  8. WARFARIN [Concomitant]
     Dosage: 4.5 MG, 1X/DAY
     Route: 048
     Dates: start: 20090807

REACTIONS (1)
  - RESPIRATORY TRACT INFECTION [None]
